FAERS Safety Report 8985928 (Version 7)
Quarter: 2015Q1

REPORT INFORMATION
  Report Type: Spontaneous
  Country: US (occurrence: US)
  Receive Date: 20121226
  Receipt Date: 20150325
  Transmission Date: 20150721
  Serious: Yes (Other)
  Sender: FDA-Public Use
  Company Number: US-PFIZER INC-2012326054

PATIENT
  Sex: Female

DRUGS (1)
  1. LYRICA [Suspect]
     Active Substance: PREGABALIN
     Dosage: UNK

REACTIONS (10)
  - Limb injury [Unknown]
  - Pain in extremity [Unknown]
  - Throat lesion [Unknown]
  - Limb discomfort [Unknown]
  - Arthritis [Unknown]
  - Tooth disorder [Unknown]
  - Pain [Unknown]
  - Fibromyalgia [Unknown]
  - Muscle spasms [Unknown]
  - Gait disturbance [Unknown]
